FAERS Safety Report 7096757-4 (Version None)
Quarter: 2010Q4

REPORT INFORMATION
  Report Type: 
  Country: None (occurrence: None)
  Receive Date: 20101111
  Receipt Date: 20091113
  Transmission Date: 20110411
  Serious: No
  Sender: FDA-Public Use
  Company Number: US-KINGPHARMUSA00001-K200901448

PATIENT

DRUGS (1)
  1. EMBEDA [Suspect]
     Dosage: UNK

REACTIONS (2)
  - PRURITUS [None]
  - VOMITING [None]
